FAERS Safety Report 8530745 (Version 2)
Quarter: 2012Q4

REPORT INFORMATION
  Report Type: Report from Study
  Country: IL (occurrence: IL)
  Receive Date: 20120425
  Receipt Date: 20121108
  Transmission Date: 20130627
  Serious: Yes (Disabling)
  Sender: FDA-Public Use
  Company Number: IL-ALLERGAN-1205385US

PATIENT
  Age: 72 Year
  Sex: Male
  Weight: 88 kg

DRUGS (4)
  1. BRIMONIDINE [Suspect]
     Indication: MEDICAL OBSERVATION
     Dosage: UNK
  2. MIDRAMID [Concomitant]
     Indication: DILATATION PUPILLARY
     Dosage: 1 Gtt, prn
     Route: 047
     Dates: start: 20110918
  3. EFRIN [Concomitant]
     Indication: DILATATION PUPILLARY
     Dosage: 1 Gtt, prn
     Route: 047
     Dates: start: 20110918
  4. LOCALIN [Concomitant]
     Indication: ANESTHESIA LOCAL
     Dosage: 1 Gtt, prn
     Route: 047
     Dates: start: 20110918

REACTIONS (1)
  - Optic atrophy [Recovered/Resolved with Sequelae]
